FAERS Safety Report 16420803 (Version 1)
Quarter: 2019Q3

REPORT INFORMATION
  Report Type: Spontaneous
  Country: US (occurrence: US)
  Receive Date: 20190611
  Receipt Date: 20190611
  Transmission Date: 20191004
  Serious: No
  Sender: FDA-Public Use
  Company Number: None

PATIENT
  Age: 69 Year
  Sex: Female

DRUGS (11)
  1. TUMERIC [Concomitant]
     Active Substance: HERBALS\TURMERIC
  2. CINNAMON. [Concomitant]
     Active Substance: CINNAMON
  3. CALTRATE [Concomitant]
     Active Substance: CALCIUM CARBONATE
  4. FLAXSEED [Concomitant]
     Active Substance: FLAX SEED
  5. VIT D [Concomitant]
     Active Substance: VITAMIN D NOS
  6. LOSARTAN/HCTZ [Suspect]
     Active Substance: HYDROCHLOROTHIAZIDE\LOSARTAN
     Indication: HYPERTENSION
     Dosage: ?          QUANTITY:1 TABLET(S);?
     Route: 048
     Dates: start: 20190610
  7. VITAMINS [Concomitant]
     Active Substance: VITAMINS
  8. FOLIC ACID. [Concomitant]
     Active Substance: FOLIC ACID
  9. SPUPER B [Concomitant]
  10. CHROMIUM PICOLINATE [Concomitant]
     Active Substance: CHROMIUM PICOLINATE
  11. MAG [Concomitant]

REACTIONS (2)
  - Night blindness [None]
  - Blood pressure abnormal [None]

NARRATIVE: CASE EVENT DATE: 20190610
